FAERS Safety Report 8508463 (Version 2)
Quarter: 2013Q1

REPORT INFORMATION
  Report Type: Spontaneous
  Country: US (occurrence: US)
  Receive Date: 20120412
  Receipt Date: 20130226
  Transmission Date: 20140127
  Serious: No
  Sender: FDA-Public Use
  Company Number: US-ASTRAZENECA-2011SE52842

PATIENT
  Age: 59 Year
  Sex: Female

DRUGS (1)
  1. NEXIUM [Suspect]
     Route: 048

REACTIONS (6)
  - Gastric disorder [Unknown]
  - Malaise [Unknown]
  - Eating disorder [Unknown]
  - Sleep disorder due to general medical condition, insomnia type [Unknown]
  - Pain [Unknown]
  - Drug dose omission [Unknown]
